FAERS Safety Report 9158236 (Version 2)
Quarter: 2013Q1

REPORT INFORMATION
  Report Type: Spontaneous
  Country: FR (occurrence: FR)
  Receive Date: 20130312
  Receipt Date: 20130325
  Transmission Date: 20140127
  Serious: Yes (Hospitalization)
  Sender: FDA-Public Use
  Company Number: FR-ROCHE-1200612

PATIENT
  Age: 64 Year
  Sex: Female

DRUGS (7)
  1. AVASTIN [Suspect]
     Indication: MALIGNANT PERITONEAL NEOPLASM
     Route: 042
     Dates: start: 20121219, end: 20121219
  2. CARBOPLATIN [Suspect]
     Indication: MALIGNANT PERITONEAL NEOPLASM
     Route: 042
     Dates: start: 20121219, end: 20121219
  3. TAXOL [Suspect]
     Indication: MALIGNANT PERITONEAL NEOPLASM
     Route: 042
     Dates: start: 20121219, end: 20121219
  4. TARDYFERON (FRANCE) [Concomitant]
  5. PARIET [Concomitant]
     Dosage: 20
     Route: 065
  6. NEORECORMON [Concomitant]
  7. ATACAND [Concomitant]

REACTIONS (2)
  - Bone marrow failure [Recovered/Resolved]
  - Mucosal inflammation [Recovering/Resolving]
